FAERS Safety Report 4450687-2 (Version None)
Quarter: 2004Q3

REPORT INFORMATION
  Report Type: 
  Country: None (occurrence: None)
  Receive Date: 20040915
  Receipt Date: 20040915
  Transmission Date: 20050211
  Serious: Yes (Hospitalization)
  Sender: FDA-Public Use
  Company Number: None

PATIENT
  Age: 64 Year
  Sex: Male
  Weight: 56 kg

DRUGS (7)
  1. HYDROCHLOROTHIAZIDE [Suspect]
     Indication: HYPERTENSION
     Dosage: 25MG  DAILY  ORAL
     Route: 048
     Dates: start: 20031107, end: 20040321
  2. FLUTICASONE PROP [Concomitant]
  3. NICOTINE [Concomitant]
  4. ALBUTEROL [Concomitant]
  5. IPATROPIUM BROMIDE [Concomitant]
  6. TRIAMCINOLONE ACETONIDE [Concomitant]
  7. LISINOPRIL [Concomitant]

REACTIONS (9)
  - ALCOHOL USE [None]
  - DEHYDRATION [None]
  - DIZZINESS POSTURAL [None]
  - FALL [None]
  - FLUID INTAKE REDUCED [None]
  - HEART RATE INCREASED [None]
  - LOSS OF CONSCIOUSNESS [None]
  - VERTIGO [None]
  - VISUAL DISTURBANCE [None]
